FAERS Safety Report 5347203-X (Version None)
Quarter: 2007Q2

REPORT INFORMATION
  Report Type: 
  Country: None (occurrence: None)
  Receive Date: 20070509
  Receipt Date: 20060324
  Transmission Date: 20071010
  Serious: Yes (Other)
  Sender: FDA-Public Use
  Company Number: PHEH2006US03960

PATIENT

DRUGS (1)
  1. TEGRETOL [Suspect]

REACTIONS (1)
  - STEVENS-JOHNSON SYNDROME [None]
